FAERS Safety Report 6473350-5 (Version None)
Quarter: 2009Q4

REPORT INFORMATION
  Report Type: 
  Country: None (occurrence: None)
  Receive Date: 20091204
  Receipt Date: 20080715
  Transmission Date: 20100525
  Serious: Yes (Hospitalization)
  Sender: FDA-Public Use
  Company Number: US-ELI_LILLY_AND_COMPANY-US200807002890

PATIENT
  Sex: Female

DRUGS (1)
  1. EVISTA [Suspect]
     Indication: BREAST CANCER
     Dosage: 60 MG, DAILY (1/D)
     Dates: start: 20080101

REACTIONS (7)
  - BLISTER [None]
  - DYSPEPSIA [None]
  - GAIT DISTURBANCE [None]
  - MEDICATION RESIDUE [None]
  - PRODUCT QUALITY ISSUE [None]
  - SWELLING [None]
  - WEIGHT INCREASED [None]
